FAERS Safety Report 18216768 (Version 2)
Quarter: 2020Q3

REPORT INFORMATION
  Report Type: Report from Study
  Country: AT (occurrence: AT)
  Receive Date: 20200901
  Receipt Date: 20200909
  Transmission Date: 20201103
  Serious: Yes (Death, Other)
  Sender: FDA-Public Use
  Company Number: AT-ADIENNEP-2020AD000434

PATIENT
  Age: 10 Year

DRUGS (3)
  1. FLUDARABINE [Suspect]
     Active Substance: FLUDARABINE PHOSPHATE
     Indication: ALLOGENIC STEM CELL TRANSPLANTATION
     Dosage: 30 MG/M2
     Dates: start: 20180903, end: 20180907
  2. BUSULFAN. [Suspect]
     Active Substance: BUSULFAN
     Indication: ALLOGENIC STEM CELL TRANSPLANTATION
     Dates: start: 20180903, end: 20180906
  3. THIOTEPA. [Suspect]
     Active Substance: THIOTEPA
     Indication: ALLOGENIC STEM CELL TRANSPLANTATION
     Dosage: 2 DOSAGES 5 MG/KG
     Dates: start: 20180908, end: 20180908

REACTIONS (6)
  - Venoocclusive liver disease [Recovered/Resolved]
  - Acute kidney injury [Recovered/Resolved]
  - Pulmonary veno-occlusive disease [Recovered/Resolved]
  - Acute hepatic failure [Recovered/Resolved]
  - Ascites [Recovered/Resolved]
  - Jaundice [Recovered/Resolved]

NARRATIVE: CASE EVENT DATE: 20180926
